FAERS Safety Report 21844083 (Version 1)
Quarter: 2023Q1

REPORT INFORMATION
  Report Type: Spontaneous
  Country: GB (occurrence: None)
  Receive Date: 20230110
  Receipt Date: 20230110
  Transmission Date: 20230417
  Serious: Yes (Hospitalization, Other)
  Sender: FDA-Public Use
  Company Number: 2023A003082

PATIENT
  Sex: Female

DRUGS (1)
  1. FASENRA [Suspect]
     Active Substance: BENRALIZUMAB
     Indication: Asthma
     Dosage: 30.0MG UNKNOWN
     Route: 058

REACTIONS (5)
  - Lower respiratory tract infection [Unknown]
  - Fall [Unknown]
  - Oxygen saturation decreased [Unknown]
  - Ankle fracture [Unknown]
  - Intervertebral disc protrusion [Unknown]
